FAERS Safety Report 8178530-9 (Version None)
Quarter: 2012Q1

REPORT INFORMATION
  Report Type: 
  Country: None (occurrence: None)
  Receive Date: 20120301
  Receipt Date: 20120221
  Transmission Date: 20120608
  Serious: Yes (Hospitalization, Other)
  Sender: FDA-Public Use
  Company Number: US-ASTRAZENECA-2010SE55771

PATIENT
  Age: 63 Year
  Sex: Female
  Weight: 73.5 kg

DRUGS (13)
  1. TOPROL-XL [Concomitant]
     Route: 048
  2. NEXIUM [Suspect]
     Indication: GASTROOESOPHAGEAL REFLUX DISEASE
     Route: 048
     Dates: end: 20040728
  3. NEXIUM [Suspect]
     Indication: GASTRIC ULCER
     Route: 048
     Dates: end: 20040728
  4. NEXIUM [Suspect]
     Route: 048
     Dates: start: 20040729
  5. BEXTRA [Concomitant]
  6. NEXIUM [Suspect]
     Route: 048
     Dates: start: 20040729
  7. CALCIUM CARBONATE [Concomitant]
  8. BISMUTH SUBSALICYLATE [Concomitant]
  9. NEXIUM [Suspect]
     Indication: OESOPHAGEAL ULCER
     Route: 048
     Dates: end: 20040728
  10. ASACOL [Concomitant]
  11. NEXIUM [Suspect]
     Route: 048
     Dates: start: 20040729
  12. SINGULAIR [Concomitant]
  13. CRESTOR [Suspect]
     Route: 048

REACTIONS (9)
  - MALAISE [None]
  - GASTROOESOPHAGEAL REFLUX DISEASE [None]
  - DRUG DOSE OMISSION [None]
  - ABDOMINAL PAIN UPPER [None]
  - HERNIA [None]
  - INCISIONAL HERNIA [None]
  - DRUG HYPERSENSITIVITY [None]
  - STOMATITIS [None]
  - RASH [None]
